FAERS Safety Report 6422416-4 (Version None)
Quarter: 2009Q4

REPORT INFORMATION
  Report Type: 
  Country: None (occurrence: None)
  Receive Date: 20091030
  Receipt Date: 20091021
  Transmission Date: 20100525
  Serious: Yes (Death)
  Sender: FDA-Public Use
  Company Number: JP-PFIZER INC-2008087410

PATIENT
  Age: 67 Year
  Sex: Female
  Weight: 64.4 kg

DRUGS (7)
  1. AMLODIPINE [Suspect]
     Indication: HYPERTENSION
     Dosage: 5 MG, 1X/DAY
     Route: 048
     Dates: start: 20080301, end: 20080903
  2. PIMENOL [Suspect]
     Indication: MITRAL VALVE REPAIR
     Dosage: 100 MG, 2X/DAY
     Route: 048
     Dates: start: 20080301, end: 20080903
  3. PARIET [Suspect]
     Indication: GASTRITIS
     Dosage: 10 MG, 1X/DAY
     Route: 048
     Dates: start: 20080301, end: 20080903
  4. LASIX [Suspect]
     Indication: HYPERTENSION
     Dosage: 20 MG, 1X/DAY
     Dates: start: 20080301, end: 20080903
  5. MUCOSTA [Concomitant]
     Indication: GASTRITIS
     Dosage: 400 MG, 1X/DAY
     Route: 048
     Dates: start: 20080301
  6. MAGNESIUM OXIDE [Concomitant]
     Indication: CONSTIPATION
     Dosage: 1320 MG, 1X/DAY
     Route: 048
     Dates: start: 20080301
  7. URSO 250 [Concomitant]
     Indication: HEPATIC FUNCTION ABNORMAL
     Dosage: 600 MG, 1X/DAY
     Route: 048
     Dates: start: 20080903

REACTIONS (1)
  - HEPATITIS FULMINANT [None]
